FAERS Safety Report 6341888-7 (Version None)
Quarter: 2009Q3

REPORT INFORMATION
  Report Type: 
  Country: None (occurrence: None)
  Receive Date: 20090904
  Receipt Date: 20090827
  Transmission Date: 20100115
  Serious: Yes (Hospitalization)
  Sender: FDA-Public Use
  Company Number: AU-ABBOTT-09P-008-0593735-00

PATIENT
  Sex: Female
  Weight: 70 kg

DRUGS (6)
  1. HUMIRA [Suspect]
     Indication: CROHN'S DISEASE
     Route: 058
     Dates: start: 20090325, end: 20090812
  2. HUMIRA [Suspect]
     Dates: start: 20090824
  3. MULTI-VITAMIN [Concomitant]
     Indication: MEDICAL DIET
     Dates: start: 20080101
  4. FOLIC ACID [Concomitant]
     Indication: VITAMIN SUPPLEMENTATION
     Dates: start: 20080101
  5. COLIZIDE [Concomitant]
     Indication: DIARRHOEA
     Dates: start: 20080101
  6. MERCAPTOPURINE [Concomitant]
     Indication: DRUG USE FOR UNKNOWN INDICATION

REACTIONS (1)
  - CROHN'S DISEASE [None]
